FAERS Safety Report 5004604-7 (Version None)
Quarter: 2006Q2

REPORT INFORMATION
  Report Type: 
  Country: None (occurrence: None)
  Receive Date: 20060512
  Receipt Date: 20060503
  Transmission Date: 20061013
  Serious: Yes (Hospitalization, Other)
  Sender: FDA-Public Use
  Company Number: 2006060022

PATIENT
  Age: 76 Year
  Sex: Female

DRUGS (7)
  1. NEURONTIN [Suspect]
     Indication: NEUROPATHY
     Dosage: 600 MG (600 MG, 1 IN 1 D)
  2. XANAX [Suspect]
     Indication: AGITATION
  3. XANAX [Suspect]
     Indication: INCOHERENT
  4. CYMBALTA [Suspect]
     Indication: ILL-DEFINED DISORDER
  5. FOSAMAX [Suspect]
     Indication: ILL-DEFINED DISORDER
  6. LORTAB [Suspect]
     Indication: MYALGIA
  7. ATIVAN [Suspect]
     Indication: AGITATION

REACTIONS (13)
  - AGITATION [None]
  - BLOOD PRESSURE DECREASED [None]
  - BLOOD SODIUM DECREASED [None]
  - CONVULSION [None]
  - FEELING ABNORMAL [None]
  - INCOHERENT [None]
  - MOANING [None]
  - MOVEMENT DISORDER [None]
  - MUSCLE SPASMS [None]
  - MYALGIA [None]
  - POSTURE ABNORMAL [None]
  - SOMNOLENCE [None]
  - SPEECH DISORDER [None]
